FAERS Safety Report 5982898-9 (Version None)
Quarter: 2008Q4

REPORT INFORMATION
  Report Type: 
  Country: None (occurrence: None)
  Receive Date: 20081205
  Receipt Date: 20081205
  Transmission Date: 20090506
  Serious: No
  Sender: FDA-Public Use
  Company Number: None

PATIENT
  Age: 69 Year
  Sex: Female
  Weight: 77.1115 kg

DRUGS (1)
  1. SULAR [Suspect]
     Indication: HYPERTENSION
     Dosage: 17 MG ONCE A DAY BUCCAL
     Route: 002
     Dates: start: 20080318, end: 20081113

REACTIONS (3)
  - GINGIVAL BLEEDING [None]
  - GINGIVAL SWELLING [None]
  - TOOTH DISORDER [None]
